FAERS Safety Report 26168394 (Version 1)
Quarter: 2025Q4

REPORT INFORMATION
  Report Type: Spontaneous
  Country: US (occurrence: US)
  Receive Date: 20251217
  Receipt Date: 20251217
  Transmission Date: 20260118
  Serious: No
  Sender: ROCHE
  Company Number: US-ROCHE-10000417089

PATIENT
  Age: 25 Year
  Sex: Male

DRUGS (1)
  1. OCREVUS ZUNOVO [Suspect]
     Active Substance: HYALURONIDASE-OCSQ\OCRELIZUMAB
     Indication: Relapsing multiple sclerosis
     Dosage: 920 MG OCRELIZUMAB AND 23,000 UNITS HYALURONID ASE PER 23 ML SOLUTION IN A SINGLE DOSE VIAL
     Route: 058
     Dates: start: 202508

REACTIONS (2)
  - Injection site pain [Not Recovered/Not Resolved]
  - Hiccups [Not Recovered/Not Resolved]
